FAERS Safety Report 23408427 (Version 1)
Quarter: 2024Q1

REPORT INFORMATION
  Report Type: Spontaneous
  Country: DE (occurrence: DE)
  Receive Date: 20240117
  Receipt Date: 20240117
  Transmission Date: 20240409
  Serious: Yes (Other)
  Sender: FDA-Public Use
  Company Number: DE-EPICPHARMA-DE-2024EPCLIT00029

PATIENT
  Sex: Male

DRUGS (2)
  1. GENTAMICIN SULFATE [Suspect]
     Active Substance: GENTAMICIN SULFATE
     Indication: Endocarditis
     Route: 042
  2. CLINDAMYCIN HYDROCHLORIDE [Concomitant]
     Active Substance: CLINDAMYCIN HYDROCHLORIDE
     Indication: Product used for unknown indication
     Route: 065

REACTIONS (4)
  - Renal failure [Recovered/Resolved]
  - Rash [Recovered/Resolved]
  - Hyperuricaemia [Not Recovered/Not Resolved]
  - Product use in unapproved indication [Unknown]
